FAERS Safety Report 8648122 (Version 5)
Quarter: 2012Q4

REPORT INFORMATION
  Report Type: Report from Study
  Country: JP (occurrence: JP)
  Receive Date: 20120703
  Receipt Date: 20121119
  Transmission Date: 20130627
  Serious: Yes (Hospitalization, Other)
  Sender: FDA-Public Use
  Company Number: JP-VERTEX PHARMACEUTICAL INC.-AE-2012-009476

PATIENT
  Age: 64 Year
  Sex: Male

DRUGS (16)
  1. VX-950 (TELAPREVIR) [Suspect]
     Indication: CHRONIC HEPATITIS C
     Dosage: 2250 mg, qd
     Route: 048
     Dates: start: 20120511, end: 20120620
  2. PEG INTRON [Suspect]
     Indication: CHRONIC HEPATITIS C
     Dosage: 1.5 ?g/kg, qw
     Route: 058
     Dates: start: 20120511, end: 20120615
  3. PEG INTRON [Suspect]
     Dosage: 1.5 ?g/kg, qw
     Route: 058
     Dates: start: 20120629, end: 20120629
  4. REBETOL [Suspect]
     Indication: CHRONIC HEPATITIS C
     Dosage: 800 mg, qd
     Route: 048
     Dates: start: 20120511, end: 20120620
  5. REBETOL [Suspect]
     Dosage: 400 mg, qd
     Route: 048
     Dates: start: 20120629, end: 20120704
  6. NEO-MINOPHAGEN C [Concomitant]
     Route: 042
     Dates: end: 20120615
  7. URDESTON [Concomitant]
     Dosage: 600 mg, qd
     Route: 048
     Dates: end: 20120620
  8. URDESTON [Concomitant]
     Dosage: 600 mg, UNK
     Route: 048
     Dates: start: 20120816
  9. TREBIANOM [Concomitant]
     Dosage: 50 mg, qd
     Route: 048
     Dates: end: 20120620
  10. FAMOSTAGINE-D [Concomitant]
     Route: 048
     Dates: end: 20120620
  11. TALION                             /01587402/ [Concomitant]
     Dosage: 10 mg, qd
     Route: 048
     Dates: start: 20120511, end: 20120620
  12. GLACTIV [Concomitant]
     Dosage: 50 mg, qd
     Route: 048
     Dates: start: 20120516, end: 20120620
  13. FEBURIC [Concomitant]
     Dosage: 10 mg, qd
     Route: 048
     Dates: start: 20120525, end: 20120620
  14. BIO-THREE [Concomitant]
     Dosage: 6 DF, qd
     Route: 048
     Dates: start: 20120624, end: 20120720
  15. SEIBULE [Concomitant]
     Dosage: 3 DF, qd
     Route: 048
     Dates: start: 20120628, end: 20120702
  16. GASTER [Concomitant]
     Dosage: 40 mg, qd
     Route: 048
     Dates: start: 20120628, end: 20120702

REACTIONS (2)
  - Pancreatitis acute [Recovered/Resolved]
  - Anaemia [Not Recovered/Not Resolved]
